FAERS Safety Report 4554422-9 (Version None)
Quarter: 2005Q1

REPORT INFORMATION
  Report Type: 
  Country: None (occurrence: None)
  Receive Date: 20050118
  Receipt Date: 20040928
  Transmission Date: 20050727
  Serious: Yes (Hospitalization)
  Sender: FDA-Public Use
  Company Number: PHHO2004US14626

PATIENT
  Age: 55 Year
  Sex: Male
  Weight: 68 kg

DRUGS (14)
  1. PERCOCET [Concomitant]
     Indication: PAIN
     Dates: start: 20040913
  2. HYZAAR [Concomitant]
     Indication: HYPERTENSION
     Dosage: UNK, UNK
     Dates: start: 20030403, end: 20040406
  3. DIOVAN [Suspect]
     Indication: HYPERTENSION
     Dosage: 12.5 MG, QD
     Dates: start: 20040407
  4. RILUTEK [Concomitant]
     Indication: AMYOTROPHIC LATERAL SCLEROSIS
     Dates: start: 20031020
  5. AMBIEN [Concomitant]
     Indication: INSOMNIA
     Dosage: 10 MG, QHS
     Dates: start: 20040729
  6. BACLOFEN [Concomitant]
     Indication: AMYOTROPHIC LATERAL SCLEROSIS
     Dates: start: 20040729
  7. LOTREL [Suspect]
     Indication: HYPERTENSION
     Dates: start: 20040716
  8. ADVIL [Concomitant]
     Indication: PAIN
     Dates: start: 20040827
  9. IBUPROFEN [Concomitant]
     Indication: PAIN
     Dates: start: 20040919
  10. DOCUSATE SODIUM [Concomitant]
     Dosage: 100 MG, TID
     Dates: start: 20040919
  11. TCH346 VS PLACEBO [Suspect]
     Indication: AMYOTROPHIC LATERAL SCLEROSIS
     Dosage: 7.5 MG, UNK
     Route: 048
     Dates: start: 20040701, end: 20040918
  12. TCH346 VS PLACEBO [Suspect]
     Dosage: NO MEDICATION
     Dates: start: 20040919, end: 20040923
  13. TCH346 VS PLACEBO [Suspect]
     Dosage: UNK, UNK
     Route: 048
     Dates: start: 20040924, end: 20041128
  14. TCH346 VS PLACEBO [Suspect]
     Dosage: NO TREATMENT
     Dates: start: 20041129

REACTIONS (7)
  - CONCOMITANT DISEASE PROGRESSION [None]
  - DIZZINESS [None]
  - HYPOTENSION [None]
  - LOSS OF CONSCIOUSNESS [None]
  - NAUSEA [None]
  - SYNCOPE [None]
  - TACHYCARDIA [None]
